FAERS Safety Report 8300034-0 (Version None)
Quarter: 2012Q2

REPORT INFORMATION
  Report Type: 
  Country: None (occurrence: None)
  Receive Date: 20120417
  Receipt Date: 20120403
  Transmission Date: 20120825
  Serious: Yes (Death)
  Sender: FDA-Public Use
  Company Number: 2012MA003709

PATIENT
  Age: 44 Year
  Sex: Female

DRUGS (7)
  1. DICLOFENAC [Concomitant]
  2. PEGASYS [Suspect]
     Indication: HEPATITIS C
     Dosage: 180 MG; QW; SQ
     Route: 058
     Dates: start: 20110209
  3. DIAZEPAM [Suspect]
     Indication: PRODUCT USED FOR UNKNOWN INDICATION
  4. COPEGUS [Suspect]
     Indication: HEPATITIS C
     Dosage: 400 MG; BID
     Dates: start: 20110209
  5. METHADONE HCL [Suspect]
     Indication: DRUG DEPENDENCE
     Dosage: PO
     Route: 048
  6. AMITRIPTYLINE HCL [Suspect]
     Indication: PAIN
     Dosage: 25 MG; PO
     Route: 048
  7. ALBUTEROL [Concomitant]

REACTIONS (1)
  - TOXICITY TO VARIOUS AGENTS [None]
